FAERS Safety Report 5072765-X (Version None)
Quarter: 2006Q3

REPORT INFORMATION
  Report Type: 
  Country: None (occurrence: None)
  Receive Date: 20060807
  Receipt Date: 20060727
  Transmission Date: 20061208
  Serious: Yes (Other)
  Sender: FDA-Public Use
  Company Number: PHBS2006GB11281

PATIENT
  Age: 30 Year
  Sex: Female

DRUGS (2)
  1. CYCLOSPORINE [Suspect]
     Indication: HEART AND LUNG TRANSPLANT
     Route: 065
  2. AZATHIOPRINE [Suspect]
     Indication: HEART AND LUNG TRANSPLANT
     Route: 065

REACTIONS (8)
  - BRONCHIECTASIS [None]
  - DRUG EXPOSURE DURING PREGNANCY [None]
  - LOWER RESPIRATORY TRACT INFECTION [None]
  - PREMATURE LABOUR [None]
  - PSEUDOMONAS INFECTION [None]
  - PULMONARY FUNCTION TEST DECREASED [None]
  - RESPIRATORY GAS EXCHANGE DISORDER [None]
  - STAPHYLOCOCCAL INFECTION [None]
